FAERS Safety Report 6122649-0 (Version None)
Quarter: 2009Q1

REPORT INFORMATION
  Report Type: 
  Country: None (occurrence: None)
  Receive Date: 20090318
  Receipt Date: 20090310
  Transmission Date: 20090719
  Serious: Yes (Hospitalization)
  Sender: FDA-Public Use
  Company Number: MX-AVENTIS-200912455GDDC

PATIENT
  Age: 7 Year
  Sex: Male
  Weight: 45 kg

DRUGS (4)
  1. NASACORT AQ [Suspect]
     Route: 045
     Dates: start: 20081201, end: 20090202
  2. RINELON [Concomitant]
     Dates: start: 20081001
  3. CLARITIN-D [Concomitant]
     Dates: start: 20081001
  4. ALLERGY VACCINE [Concomitant]
     Dates: start: 20081201

REACTIONS (3)
  - ADENOIDAL HYPERTROPHY [None]
  - NASAL CONGESTION [None]
  - UNEVALUABLE EVENT [None]
